FAERS Safety Report 9467045 (Version 3)
Quarter: 2013Q4

REPORT INFORMATION
  Report Type: Spontaneous
  Country: MT (occurrence: MT)
  Receive Date: 20130820
  Receipt Date: 20131202
  Transmission Date: 20140711
  Serious: Yes (Other)
  Sender: FDA-Public Use
  Company Number: MT-GLAXOSMITHKLINE-B0914973A

PATIENT
  Age: 83 Year
  Sex: Male

DRUGS (4)
  1. COMBODART [Suspect]
     Indication: BENIGN PROSTATIC HYPERPLASIA
     Dosage: 1CAP PER DAY
     Route: 065
     Dates: start: 20130727
  2. MODURETIC [Concomitant]
     Route: 065
  3. ALDOMET [Concomitant]
     Route: 065
  4. GLAUCOMA EYE DROPS (UNSPECIFIED) [Concomitant]
     Route: 065

REACTIONS (2)
  - Urinary retention [Recovering/Resolving]
  - Alopecia [Unknown]
